FAERS Safety Report 11376426 (Version 1)
Quarter: 2015Q3

REPORT INFORMATION
  Report Type: Spontaneous
  Country: US (occurrence: US)
  Receive Date: 20150813
  Receipt Date: 20150813
  Transmission Date: 20151125
  Serious: No
  Sender: FDA-Public Use
  Company Number: US-MYLANLABS-2015M1020051

PATIENT
  Sex: Female

DRUGS (2)
  1. XULANE [Suspect]
     Active Substance: ETHINYL ESTRADIOL\NORELGESTROMIN
     Indication: OFF LABEL USE
  2. XULANE [Suspect]
     Active Substance: ETHINYL ESTRADIOL\NORELGESTROMIN
     Indication: ENDOMETRIOSIS
     Dosage: 150 ?G/35 UG PER DAY, QW X 3, OFF 1W
     Route: 062

REACTIONS (2)
  - Menorrhagia [Recovered/Resolved]
  - Weight increased [Not Recovered/Not Resolved]
